FAERS Safety Report 12846167 (Version 1)
Quarter: 2016Q4

REPORT INFORMATION
  Report Type: Report from Study
  Country: DE (occurrence: DE)
  Receive Date: 20161014
  Receipt Date: 20161014
  Transmission Date: 20170207
  Serious: Yes (Other)
  Sender: FDA-Public Use
  Company Number: DE-ROCHE-1809809

PATIENT
  Age: 46 Year
  Sex: Female

DRUGS (3)
  1. CARBOPLATIN. [Concomitant]
     Active Substance: CARBOPLATIN
     Indication: BREAST CANCER
     Route: 065
     Dates: start: 20101203, end: 20110401
  2. BEVACIZUMAB [Suspect]
     Active Substance: BEVACIZUMAB
     Dosage: ALSO RECEIVED ON 18/FEB/2011
     Route: 065
     Dates: start: 20110114, end: 20110401
  3. BEVACIZUMAB [Suspect]
     Active Substance: BEVACIZUMAB
     Indication: BREAST CANCER
     Dosage: ALSO RECEIVED ON 22/DEC/2010
     Route: 065
     Dates: start: 20101203, end: 20110401

REACTIONS (7)
  - Deafness [Recovered/Resolved]
  - Axillary pain [Not Recovered/Not Resolved]
  - Vomiting [Recovered/Resolved]
  - Impaired healing [Not Recovered/Not Resolved]
  - Oesophageal spasm [Recovered/Resolved]
  - Abdominal pain upper [Recovered/Resolved]
  - Nausea [Recovered/Resolved]

NARRATIVE: CASE EVENT DATE: 20101230
